FAERS Safety Report 24529178 (Version 1)
Quarter: 2024Q4

REPORT INFORMATION
  Report Type: Spontaneous
  Country: US (occurrence: None)
  Receive Date: 20241019
  Receipt Date: 20241019
  Transmission Date: 20250115
  Serious: No
  Sender: Public
  Company Number: None

PATIENT
  Age: 70 Year
  Sex: Female
  Weight: 63 kg

DRUGS (6)
  1. SCOPOLAMINE TRANSDERMAL SYSTEM [Suspect]
     Active Substance: SCOPOLAMINE
     Indication: Motion sickness
     Dates: start: 20240911, end: 20240914
  2. ATORVASTATIN [Concomitant]
  3. ESTRADIOL [Concomitant]
  4. MEDROXYPROGESTERONE [Concomitant]
  5. CALCIUM [Concomitant]
     Active Substance: CALCIUM
  6. ester C [Concomitant]

REACTIONS (3)
  - Agitation [None]
  - Tremor [None]
  - Fine motor skill dysfunction [None]

NARRATIVE: CASE EVENT DATE: 20240914
